FAERS Safety Report 5769029-5 (Version None)
Quarter: 2008Q2

REPORT INFORMATION
  Report Type: 
  Country: None (occurrence: None)
  Receive Date: 20080612
  Receipt Date: 20080318
  Transmission Date: 20081010
  Serious: No
  Sender: FDA-Public Use
  Company Number: US-ABBOTT-08P-163-0443216-00

PATIENT
  Sex: Female
  Weight: 89.892 kg

DRUGS (2)
  1. HUMIRA [Suspect]
     Indication: PSORIATIC ARTHROPATHY
     Route: 058
     Dates: start: 20080304
  2. HUMIRA [Suspect]
     Route: 058
     Dates: start: 20070701, end: 20080304

REACTIONS (4)
  - ACCIDENTAL EXPOSURE [None]
  - ASTHENIA [None]
  - PAIN [None]
  - PSORIATIC ARTHROPATHY [None]
